FAERS Safety Report 18279910 (Version 1)
Quarter: 2020Q3

REPORT INFORMATION
  Report Type: Spontaneous
  Country: FR (occurrence: FR)
  Receive Date: 20200918
  Receipt Date: 20200918
  Transmission Date: 20201103
  Serious: Yes (Hospitalization)
  Sender: FDA-Public Use
  Company Number: FR-AUROBINDO-AUR-APL-2020-048143

PATIENT
  Age: 22 Year
  Sex: Female
  Weight: 46.2 kg

DRUGS (2)
  1. ATARAX [Suspect]
     Active Substance: HYDROXYZINE HYDROCHLORIDE
     Indication: PRODUCT USED FOR UNKNOWN INDICATION
     Dosage: 2 DOSAGE FORM, 1 TOTAL
     Route: 048
     Dates: start: 20191107
  2. PARACETAMOL [Suspect]
     Active Substance: ACETAMINOPHEN
     Indication: PRODUCT USED FOR UNKNOWN INDICATION
     Dosage: 12 GRAM, 1 TOTAL
     Route: 048
     Dates: start: 20191107

REACTIONS (3)
  - Toxicity to various agents [Recovered/Resolved]
  - Intentional overdose [Recovered/Resolved]
  - Electrocardiogram T wave amplitude decreased [Recovered/Resolved]

NARRATIVE: CASE EVENT DATE: 20191107
